FAERS Safety Report 23857087 (Version 5)
Quarter: 2025Q2

REPORT INFORMATION
  Report Type: Report from Study
  Country: CA (occurrence: CA)
  Receive Date: 20240515
  Receipt Date: 20250514
  Transmission Date: 20250716
  Serious: Yes (Hospitalization, Disabling)
  Sender: ROCHE
  Company Number: CA-ROCHE-3557319

PATIENT
  Sex: Female

DRUGS (3)
  1. OCREVUS [Suspect]
     Active Substance: OCRELIZUMAB
     Indication: Multiple sclerosis
     Route: 042
  2. OCREVUS [Suspect]
     Active Substance: OCRELIZUMAB
     Route: 042
  3. OCREVUS [Suspect]
     Active Substance: OCRELIZUMAB
     Dosage: 300MG AT DAY 0 AND DAY 14 AND THEN 600MG EVERY 6MONTHS
     Route: 042
     Dates: start: 20201007

REACTIONS (2)
  - Muscular weakness [Not Recovered/Not Resolved]
  - Hip fracture [Unknown]
